FAERS Safety Report 4430862-3 (Version None)
Quarter: 2004Q3

REPORT INFORMATION
  Report Type: 
  Country: None (occurrence: None)
  Receive Date: 20040823
  Receipt Date: 20040603
  Transmission Date: 20050211
  Serious: Yes (Hospitalization)
  Sender: FDA-Public Use
  Company Number: FR-GLAXOSMITHKLINE-B0334546A

PATIENT
  Age: 73 Year
  Sex: Female
  Weight: 60 kg

DRUGS (13)
  1. SERETIDE [Suspect]
     Route: 055
     Dates: end: 20040502
  2. MEPRONIZINE [Suspect]
     Dosage: 2TAB PER DAY
     Route: 048
     Dates: end: 20040502
  3. OMEPRAZOLE [Suspect]
     Route: 048
     Dates: end: 20040502
  4. ZOCOR [Suspect]
     Route: 048
     Dates: end: 20040502
  5. FOSAMAX [Suspect]
     Dosage: 70MG WEEKLY
     Route: 048
     Dates: end: 20040502
  6. COZAAR [Suspect]
     Dosage: 50MG PER DAY
     Route: 048
     Dates: end: 20040502
  7. SERC [Suspect]
     Route: 048
     Dates: end: 20040502
  8. OROCAL D3 [Suspect]
     Route: 048
     Dates: end: 20040502
  9. BRONCHODUAL [Suspect]
     Dates: end: 20040502
  10. LEXOMIL [Suspect]
     Route: 048
     Dates: end: 20040502
  11. STILNOX [Suspect]
     Indication: INSOMNIA
     Route: 048
     Dates: end: 20040502
  12. ACETAMINOPHEN W/ CODEINE [Suspect]
     Route: 048
     Dates: end: 20040502
  13. RENNIE [Suspect]
     Route: 048
     Dates: end: 20040502

REACTIONS (11)
  - COMA [None]
  - CONFUSIONAL STATE [None]
  - DIARRHOEA [None]
  - HYPONATRAEMIA [None]
  - METABOLIC ACIDOSIS [None]
  - NEUTROPHIL COUNT INCREASED [None]
  - RENAL FAILURE [None]
  - RESPIRATORY DISTRESS [None]
  - RHABDOMYOLYSIS [None]
  - SEPTIC SHOCK [None]
  - WHITE BLOOD CELL COUNT INCREASED [None]
